FAERS Safety Report 4743183-6 (Version None)
Quarter: 2005Q3

REPORT INFORMATION
  Report Type: 
  Country: None (occurrence: None)
  Receive Date: 20050811
  Receipt Date: 20050727
  Transmission Date: 20060218
  Serious: Yes (Death, Other)
  Sender: FDA-Public Use
  Company Number: 2005107492

PATIENT
  Sex: Female

DRUGS (5)
  1. NEURONTIN [Suspect]
     Indication: NEUROPATHY
     Dates: start: 20040101
  2. FENTANYL [Concomitant]
  3. KLONOPIN [Concomitant]
  4. ALL OTHER THERAPEUTIC PRODUCTS (ALL OTHER THERAPEUTIC PRODUCTS) [Concomitant]
  5. MORPHINE [Concomitant]

REACTIONS (1)
  - LUNG NEOPLASM MALIGNANT [None]
